FAERS Safety Report 15069741 (Version 1)
Quarter: 2018Q2

REPORT INFORMATION
  Report Type: Report from Study
  Country: US (occurrence: US)
  Receive Date: 20180626
  Receipt Date: 20180626
  Transmission Date: 20180711
  Serious: No
  Sender: FDA-Public Use
  Company Number: US-AMGEN-USASP2013064471

PATIENT
  Age: 58 Year
  Sex: Female
  Weight: 46.26 kg

DRUGS (24)
  1. MAGNESIUM SULFATE. [Concomitant]
     Active Substance: MAGNESIUM SULFATE
     Dosage: 1000 MG, UNK
     Route: 042
  2. VANCOMYCIN [Concomitant]
     Active Substance: VANCOMYCIN
     Dosage: 750 UNK, UNK
  3. AVASTIN                            /00848101/ [Suspect]
     Active Substance: SIMVASTATIN
     Dosage: CYCLE 12, DAY 1 (467 MG)
     Route: 065
     Dates: start: 20130807
  4. FLUOROURACIL. [Concomitant]
     Active Substance: FLUOROURACIL
     Dosage: 568 MG, UNK
     Route: 042
  5. ALOXI [Concomitant]
     Active Substance: PALONOSETRON HYDROCHLORIDE
     Dosage: 0.25 MG, UNK
     Route: 042
  6. FUSILEV [Concomitant]
     Active Substance: LEVOLEUCOVORIN CALCIUM
     Dosage: 139 MG, UNK
     Route: 042
  7. INVANZ [Concomitant]
     Active Substance: ERTAPENEM SODIUM
     Dosage: 1000 UNK, UNK
  8. CETUXIMAB. [Suspect]
     Active Substance: CETUXIMAB
     Indication: RECTAL CANCER
     Dosage: CYCLE 1 (1 IN 14 D)
     Route: 065
     Dates: start: 20130821
  9. ATROPINE SULFATE. [Concomitant]
     Active Substance: ATROPINE SULFATE
     Dosage: IVPB (0.4 MG), UNK
     Route: 042
  10. AVASTIN                            /00848101/ [Suspect]
     Active Substance: SIMVASTATIN
     Dosage: 467 MG, CYCLE 12 DAY 1
     Route: 065
     Dates: start: 20130904
  11. DEXAMETHASONE. [Concomitant]
     Active Substance: DEXAMETHASONE
     Dosage: 10 MG, UNK
     Route: 042
  12. CALCIUM GLUCONATE. [Concomitant]
     Active Substance: CALCIUM GLUCONATE
     Dosage: 1000 MG, UNK
     Route: 042
  13. CAMPTOSAR [Concomitant]
     Active Substance: IRINOTECAN HYDROCHLORIDE
     Dosage: IVPB (250 MG), UNK
     Route: 042
  14. FLUOROURACIL. [Concomitant]
     Active Substance: FLUOROURACIL
     Dosage: PUMP (834 MG), UNK
  15. AVASTIN                            /00848101/ [Suspect]
     Active Substance: SIMVASTATIN
     Indication: RECTAL CANCER
     Dosage: 463 MG, 1 IN 14 DAYS (CYCLE 1)
     Route: 042
     Dates: start: 20130821, end: 20130821
  16. IRINOTECAN HYDROCHLORIDE TRIHYDRATE [Suspect]
     Active Substance: IRINOTECAN HYDROCHLORIDE
     Indication: RECTAL CANCER
     Dosage: CYCLE 1 (1 IN 14 D)
     Route: 065
     Dates: start: 20130821
  17. FUSILEV [Concomitant]
     Active Substance: LEVOLEUCOVORIN CALCIUM
     Dosage: 142 MG, UNK
     Route: 042
  18. NEULASTA [Suspect]
     Active Substance: PEGFILGRASTIM
     Indication: RECTAL CANCER
     Dosage: CYCLE 1, 1 IN 14D
     Route: 065
     Dates: start: 20130821
  19. FOLINIC ACID [Suspect]
     Active Substance: LEUCOVORIN
     Indication: RECTAL CANCER
     Dosage: UNK UNK, CYCLE 1 (1 IN 14 D)
     Route: 065
     Dates: start: 20130821
  20. FLUOROURACIL. [Concomitant]
     Active Substance: FLUOROURACIL
     Dosage: IVPB (139 MG)
     Route: 042
  21. ELOXATIN [Concomitant]
     Active Substance: OXALIPLATIN
     Dosage: 120 MG, UNK
     Route: 042
  22. FLUOROURACIL. [Suspect]
     Active Substance: FLUOROURACIL
     Indication: RECTAL CANCER
     Dosage: CYCLE 1, (1 IN 14 D)
     Route: 065
     Dates: start: 20130821
  23. FLUOROURACIL. [Concomitant]
     Active Substance: FLUOROURACIL
     Dosage: PUMP (852 MG), UNK
     Route: 042
  24. FLUOROURACIL. [Concomitant]
     Active Substance: FLUOROURACIL
     Dosage: 556 MG, UNK

REACTIONS (30)
  - Paraesthesia [Unknown]
  - Lymphocyte count abnormal [Unknown]
  - Red blood cell count decreased [Unknown]
  - Back pain [Unknown]
  - Diarrhoea [Unknown]
  - Protein total decreased [Unknown]
  - Heart rate decreased [Unknown]
  - Blood potassium decreased [Unknown]
  - Monocyte count abnormal [Unknown]
  - Fatigue [Unknown]
  - Body temperature decreased [Unknown]
  - Mean cell haemoglobin concentration abnormal [Unknown]
  - Laboratory test abnormal [Unknown]
  - Peripheral sensory neuropathy [Unknown]
  - Neutrophil count abnormal [Unknown]
  - Basophil count abnormal [Unknown]
  - Blood albumin decreased [Unknown]
  - Haematocrit abnormal [Unknown]
  - Blood pressure increased [Unknown]
  - Areflexia [Unknown]
  - Blood calcium decreased [Unknown]
  - White blood cell count increased [Unknown]
  - Constipation [Unknown]
  - Blood creatinine decreased [Unknown]
  - Overweight [Unknown]
  - Haemoglobin abnormal [Unknown]
  - Blood urea decreased [Unknown]
  - Underweight [Unknown]
  - Nausea [Unknown]
  - Blood alkaline phosphatase increased [Unknown]

NARRATIVE: CASE EVENT DATE: 20130925
